FAERS Safety Report 9846271 (Version 1)
Quarter: 2013Q4

REPORT INFORMATION
  Report Type: Spontaneous
  Country: US (occurrence: None)
  Receive Date: 20131223
  Receipt Date: 20131223
  Transmission Date: 20140711
  Serious: No
  Sender: FDA-Public Use
  Company Number: CABO-13003256

PATIENT
  Age: 36 Year
  Sex: Male

DRUGS (2)
  1. COMETRIQ [Suspect]
     Indication: SOFT TISSUE CANCER
     Dates: start: 20130830, end: 20130905
  2. VOTRIENT(PAZOPANIB HYDROCHLORIDE) [Concomitant]

REACTIONS (3)
  - Dyspnoea [None]
  - Hyperhidrosis [None]
  - Off label use [None]
